FAERS Safety Report 20979669 (Version 1)
Quarter: 2022Q2

REPORT INFORMATION
  Report Type: Spontaneous
  Country: US (occurrence: US)
  Receive Date: 20220620
  Receipt Date: 20220620
  Transmission Date: 20220721
  Serious: No
  Sender: FDA-Public Use
  Company Number: US-AUROBINDO-AUR-APL-2022-015112

PATIENT
  Age: 82 Year
  Sex: Male
  Weight: 85.7 kg

DRUGS (1)
  1. FAMOTIDINE [Suspect]
     Active Substance: FAMOTIDINE
     Indication: Flatulence
     Dosage: UNK (04 PILLS FOR 02 DAYS)
     Route: 065
     Dates: start: 20220420, end: 20220422

REACTIONS (1)
  - Constipation [Recovered/Resolved]

NARRATIVE: CASE EVENT DATE: 20220422
